FAERS Safety Report 6784254-2 (Version None)
Quarter: 2010Q2

REPORT INFORMATION
  Report Type: 
  Country: None (occurrence: None)
  Receive Date: 20100622
  Receipt Date: 20100610
  Transmission Date: 20101027
  Serious: Yes (Other)
  Sender: FDA-Public Use
  Company Number: US-PFIZER INC-2010073633

PATIENT
  Sex: Female
  Weight: 70.75 kg

DRUGS (6)
  1. LYRICA [Suspect]
     Indication: FIBROMYALGIA
     Dosage: 25 MG, 3X/DAY
     Dates: start: 20090101
  2. LYRICA [Suspect]
     Dosage: 100 MG, 3X/DAY
     Route: 048
  3. CALAN [Suspect]
     Indication: MITRAL VALVE PROLAPSE
     Dosage: 90 MG, 2X/DAY
     Route: 048
  4. XANAX [Concomitant]
     Dosage: 1 MG, 4X/DAY
     Route: 048
  5. ANASTROZOLE [Concomitant]
     Indication: NEOPLASM MALIGNANT
     Dosage: 1 MG, 1X/DAY
  6. SYNTHROID [Concomitant]
     Indication: THYROID DISORDER
     Dosage: UNK

REACTIONS (3)
  - EYE OEDEMA [None]
  - OEDEMA PERIPHERAL [None]
  - WEIGHT INCREASED [None]
